FAERS Safety Report 6872809-6 (Version None)
Quarter: 2010Q3

REPORT INFORMATION
  Report Type: 
  Country: None (occurrence: None)
  Receive Date: 20100723
  Receipt Date: 20081102
  Transmission Date: 20110219
  Serious: No
  Sender: FDA-Public Use
  Company Number: US-PFIZER INC-2008092201

PATIENT
  Sex: Female
  Weight: 67.59 kg

DRUGS (3)
  1. CHANTIX [Suspect]
     Indication: SMOKING CESSATION THERAPY
     Route: 048
     Dates: start: 20081020, end: 20081025
  2. ALL OTHER THERAPEUTIC PRODUCTS [Concomitant]
  3. SYNTHROID [Concomitant]
     Route: 048

REACTIONS (2)
  - DYSGEUSIA [None]
  - NAUSEA [None]
